FAERS Safety Report 6604021-X (Version None)
Quarter: 2010Q1

REPORT INFORMATION
  Report Type: 
  Country: None (occurrence: None)
  Receive Date: 20100226
  Receipt Date: 20090622
  Transmission Date: 20100710
  Serious: Yes (Hospitalization)
  Sender: FDA-Public Use
  Company Number: A0778959A

PATIENT
  Age: 33 Year
  Sex: Female

DRUGS (1)
  1. LAMOTRIGINE [Suspect]
     Indication: OBSESSIVE-COMPULSIVE DISORDER
     Dosage: 200MG PER DAY
     Route: 048
     Dates: start: 20090401, end: 20090401

REACTIONS (1)
  - RASH [None]
